FAERS Safety Report 6147223-1 (Version None)
Quarter: 2009Q2

REPORT INFORMATION
  Report Type: 
  Country: None (occurrence: None)
  Receive Date: 20090407
  Receipt Date: 20090326
  Transmission Date: 20091009
  Serious: Yes (Congenital Anomaly)
  Sender: FDA-Public Use
  Company Number: GB-RANBAXY-2009RR-23085

PATIENT
  Sex: Male

DRUGS (3)
  1. FLUOXETINE [Suspect]
     Indication: DEPRESSION
     Dosage: 20 MG, QD
     Route: 064
     Dates: start: 20060808
  2. FLUOXETINE [Suspect]
     Dosage: 40 MG, UNK
     Route: 064
     Dates: start: 20030821, end: 20060808
  3. PANTOPRAZOLE SODIUM [Concomitant]
     Indication: GASTRITIS
     Dosage: 20 MG, QD
     Route: 064

REACTIONS (1)
  - RENAL DYSPLASIA [None]
